FAERS Safety Report 8604216-X (Version None)
Quarter: 2012Q3

REPORT INFORMATION
  Report Type: 
  Country: None (occurrence: None)
  Receive Date: 20120820
  Receipt Date: 20120816
  Transmission Date: 20120928
  Serious: Yes (Death)
  Sender: FDA-Public Use
  Company Number: US-PFIZER INC-2012101422

PATIENT
  Age: 76 Year
  Sex: Male

DRUGS (1)
  1. XALKORI [Suspect]
     Indication: LUNG CARCINOMA CELL TYPE UNSPECIFIED STAGE 0
     Dosage: 250 MG, 2X/DAY
     Dates: start: 20120103

REACTIONS (3)
  - CONSTIPATION [None]
  - DIARRHOEA [None]
  - PNEUMONIA [None]
